FAERS Safety Report 23650001 (Version 1)
Quarter: 2024Q1

REPORT INFORMATION
  Report Type: Spontaneous
  Country: US (occurrence: None)
  Receive Date: 20240319
  Receipt Date: 20240319
  Transmission Date: 20240409
  Serious: No
  Sender: FDA-Public Use
  Company Number: US-ROCHE-3305133

PATIENT
  Age: 61 Year
  Sex: Female
  Weight: 72.64 kg

DRUGS (1)
  1. ERIVEDGE [Suspect]
     Active Substance: VISMODEGIB
     Indication: Basal cell carcinoma
     Dosage: 6 WEEKS AGO
     Route: 048
     Dates: start: 202301

REACTIONS (1)
  - Muscle spasms [Unknown]
